FAERS Safety Report 6496753-1 (Version None)
Quarter: 2009Q4

REPORT INFORMATION
  Report Type: 
  Country: None (occurrence: None)
  Receive Date: 20091211
  Receipt Date: 20091204
  Transmission Date: 20100525
  Serious: Yes (Other)
  Sender: FDA-Public Use
  Company Number: 2009SP022121

PATIENT
  Sex: Male

DRUGS (1)
  1. DR. SCHOLL'S INGROWN TOENAIL PAIN RELIEVER [Suspect]
     Indication: DRUG USE FOR UNKNOWN INDICATION
     Dosage: TOP
     Route: 061

REACTIONS (2)
  - DRUG INEFFECTIVE [None]
  - LOCALISED INFECTION [None]
